FAERS Safety Report 9215027 (Version 2)
Quarter: 2014Q1

REPORT INFORMATION
  Report Type: Spontaneous
  Country: US (occurrence: US)
  Receive Date: 20130405
  Receipt Date: 20140107
  Transmission Date: 20141002
  Serious: Yes (Other)
  Sender: FDA-Public Use
  Company Number: US-BAYER-2013-041418

PATIENT
  Age: 27 Year
  Sex: Female

DRUGS (3)
  1. YASMIN [Suspect]
     Dosage: UNK
     Dates: start: 20031015, end: 20050704
  2. YASMIN [Suspect]
     Dosage: UNK
     Dates: start: 200609, end: 200807
  3. PREVACID [Concomitant]

REACTIONS (5)
  - Gallbladder disorder [Recovered/Resolved]
  - Biliary dyskinesia [None]
  - Pain [Recovered/Resolved]
  - Injury [Recovered/Resolved]
  - Pain [None]
